FAERS Safety Report 5193585-1 (Version None)
Quarter: 2006Q4

REPORT INFORMATION
  Report Type: 
  Country: None (occurrence: None)
  Receive Date: 20061228
  Receipt Date: 20060912
  Transmission Date: 20070319
  Serious: Yes (Other)
  Sender: FDA-Public Use
  Company Number: 2006102877

PATIENT
  Age: 83 Year
  Sex: Male

DRUGS (3)
  1. FLONASE [Suspect]
     Route: 045
     Dates: start: 20010101, end: 20060101
  2. ZYRTEC [Suspect]
     Indication: RHINITIS
     Route: 065
     Dates: start: 20010101
  3. CPAP [Concomitant]

REACTIONS (2)
  - AGEUSIA [None]
  - ANOSMIA [None]
